FAERS Safety Report 7367761-3 (Version None)
Quarter: 2011Q1

REPORT INFORMATION
  Report Type: 
  Country: None (occurrence: None)
  Receive Date: 20110322
  Receipt Date: 20110314
  Transmission Date: 20110831
  Serious: Yes (Hospitalization)
  Sender: FDA-Public Use
  Company Number: US-GILEAD-2011-0036812

PATIENT
  Sex: Female
  Weight: 63.56 kg

DRUGS (6)
  1. LETAIRIS [Suspect]
     Indication: PULMONARY ARTERIAL HYPERTENSION
     Route: 048
     Dates: start: 20070730
  2. ADCIRCA [Concomitant]
  3. CONTRACEPTIVE PILL [Concomitant]
  4. ACETAMINOPHEN [Concomitant]
  5. DIGOXIN [Concomitant]
  6. BENADRYL [Concomitant]

REACTIONS (1)
  - SYNCOPE [None]
